FAERS Safety Report 4584388-7 (Version None)
Quarter: 2005Q1

REPORT INFORMATION
  Report Type: 
  Country: None (occurrence: None)
  Receive Date: 20050125
  Receipt Date: 20041220
  Transmission Date: 20050727
  Serious: Yes (Hospitalization)
  Sender: FDA-Public Use
  Company Number: USA040979344

PATIENT
  Age: 82 Year
  Sex: Female
  Weight: 68 kg

DRUGS (10)
  1. FORTEO [Suspect]
     Indication: OSTEOPOROSIS
     Dosage: 20 UG/L DAY
     Dates: start: 20040707
  2. PREDNISONE [Concomitant]
  3. NORVASC [Concomitant]
  4. CORGARD [Concomitant]
  5. DIGOXIN [Concomitant]
  6. DYAZIDE [Concomitant]
  7. HYDROCODONE [Concomitant]
  8. ARAVA [Concomitant]
  9. ELAVIL [Concomitant]
  10. VITAMIN NOS [Concomitant]

REACTIONS (1)
  - PNEUMONIA [None]
